FAERS Safety Report 13709964 (Version 1)
Quarter: 2017Q2

REPORT INFORMATION
  Report Type: Spontaneous
  Country: US (occurrence: US)
  Receive Date: 20170630
  Receipt Date: 20170630
  Transmission Date: 20170830
  Serious: Yes (Hospitalization)
  Sender: FDA-Public Use
  Company Number: None

PATIENT
  Age: 65 Year
  Sex: Male
  Weight: 119.75 kg

DRUGS (2)
  1. LIRAGLUTIDE [Suspect]
     Active Substance: LIRAGLUTIDE
     Indication: DIABETES MELLITUS
     Dates: start: 20170209, end: 20170415
  2. LIRAGLUTIDE [Suspect]
     Active Substance: LIRAGLUTIDE
     Indication: CORONARY ARTERIAL STENT INSERTION
     Dates: start: 20170209, end: 20170415

REACTIONS (1)
  - Pancreatitis [None]

NARRATIVE: CASE EVENT DATE: 20170415
